FAERS Safety Report 11857837 (Version 1)
Quarter: 2015Q4

REPORT INFORMATION
  Report Type: Spontaneous
  Country: DE (occurrence: DE)
  Receive Date: 20151222
  Receipt Date: 20151222
  Transmission Date: 20160305
  Serious: Yes (Death, Hospitalization)
  Sender: FDA-Public Use
  Company Number: DE-PERRIGO-15DE013114

PATIENT
  Age: 53 Year
  Sex: Male

DRUGS (9)
  1. TICAGRELOR [Concomitant]
     Active Substance: TICAGRELOR
     Indication: PLATELET AGGREGATION INHIBITION
     Dosage: 180 MG, SINGLE
     Route: 048
  2. DEXAMETHASONE                      /00016002/ [Concomitant]
     Active Substance: DEXAMETHASONE SODIUM PHOSPHATE
     Indication: PROPHYLAXIS
     Dosage: 40 MG, SINGLE
     Route: 042
  3. DEXAMETHASONE                      /00016002/ [Concomitant]
     Active Substance: DEXAMETHASONE SODIUM PHOSPHATE
     Dosage: 12 MG, QD
     Route: 065
  4. HEPARIN [Concomitant]
     Active Substance: HEPARIN SODIUM
     Indication: PLATELET AGGREGATION INHIBITION
     Dosage: 3000 UNITS, SINGLE
     Route: 042
  5. IBUPROFEN 200 MG 604 [Suspect]
     Active Substance: IBUPROFEN
     Indication: PRODUCT USED FOR UNKNOWN INDICATION
     Dosage: 400 MG, QD
     Route: 048
  6. TICAGRELOR [Concomitant]
     Active Substance: TICAGRELOR
     Dosage: 180 MG DAILY
     Route: 048
  7. ASPIRIN                            /00002701/ [Suspect]
     Active Substance: ASPIRIN
     Dosage: 100 MG, QD
     Route: 048
  8. EPTIFIBATIDE. [Concomitant]
     Active Substance: EPTIFIBATIDE
     Indication: PLATELET AGGREGATION INHIBITION
     Dosage: 15.8 MG, SINGLE
     Route: 065
  9. ASPIRIN                            /00002701/ [Suspect]
     Active Substance: ASPIRIN
     Indication: PLATELET AGGREGATION INHIBITION
     Dosage: 500 MG, SINGLE, LOADING DOSE
     Route: 048

REACTIONS (7)
  - Oedema [Fatal]
  - Inhibitory drug interaction [Unknown]
  - Brain stem infarction [Unknown]
  - Circulatory collapse [Unknown]
  - Coma [Unknown]
  - Cardio-respiratory arrest [Fatal]
  - Brain herniation [Fatal]
